FAERS Safety Report 9838332 (Version 1)
Quarter: 2014Q1

REPORT INFORMATION
  Report Type: Spontaneous
  Country: US (occurrence: US)
  Receive Date: 20140123
  Receipt Date: 20140123
  Transmission Date: 20141002
  Serious: Yes (Other)
  Sender: FDA-Public Use
  Company Number: US-BAYER-2014-010201

PATIENT
  Age: 38 Year
  Sex: Female
  Weight: 100 kg

DRUGS (1)
  1. ALEVE TABLET [Suspect]
     Indication: BACK PAIN
     Dosage: UNK UNK, PRN
     Route: 048
     Dates: start: 2012, end: 20140116

REACTIONS (2)
  - Menorrhagia [Recovered/Resolved]
  - Menstrual disorder [Recovered/Resolved]
